FAERS Safety Report 7208414-1 (Version None)
Quarter: 2011Q1

REPORT INFORMATION
  Report Type: 
  Country: None (occurrence: None)
  Receive Date: 20110104
  Receipt Date: 20101222
  Transmission Date: 20110831
  Serious: Yes (Hospitalization)
  Sender: FDA-Public Use
  Company Number: US-ELI_LILLY_AND_COMPANY-US201012006156

PATIENT
  Sex: Female

DRUGS (13)
  1. POTASSIUM [Concomitant]
  2. HYDROCHLOROTHIAZIDE [Concomitant]
  3. VITAMIN D [Concomitant]
  4. ZYPREXA [Suspect]
     Indication: ANXIETY
     Dosage: 10 MG, DAILY (1/D)
  5. PRILOSEC [Concomitant]
  6. SYMBICORT [Concomitant]
  7. SPIRIVA [Concomitant]
  8. ZOLOFT [Concomitant]
  9. PROAIR HFA [Concomitant]
  10. SYNTHROID [Concomitant]
  11. IRON [Concomitant]
  12. NORVASC [Concomitant]
  13. MACROBID [Concomitant]

REACTIONS (3)
  - SHOULDER ARTHROPLASTY [None]
  - PNEUMONIA [None]
  - OFF LABEL USE [None]
